FAERS Safety Report 25407365 (Version 1)
Quarter: 2025Q2

REPORT INFORMATION
  Report Type: Spontaneous
  Country: US (occurrence: None)
  Receive Date: 20250605
  Receipt Date: 20250605
  Transmission Date: 20250716
  Serious: Yes (unspecified)
  Sender: FDA-CTU
  Company Number: None

PATIENT
  Age: 78 Year
  Sex: Male
  Weight: 155.7 kg

DRUGS (8)
  1. CEFTRIAXONE [Suspect]
     Active Substance: CEFTRIAXONE
     Indication: Urinary tract infection
     Dosage: FREQUENCY : DAILY;?
     Route: 040
     Dates: start: 20250603, end: 20250603
  2. SODIUM CHLORIDE [Concomitant]
     Active Substance: SODIUM CHLORIDE
     Dates: start: 20250603, end: 20250603
  3. FINASTERIDE [Concomitant]
     Active Substance: FINASTERIDE
     Dates: start: 20250603, end: 20250603
  4. LOSARTAN [Concomitant]
     Active Substance: LOSARTAN
     Dates: start: 20250603, end: 20250603
  5. SOTALOL HYDROCHLORIDE [Concomitant]
     Active Substance: SOTALOL HYDROCHLORIDE
     Dates: start: 20250603, end: 20250603
  6. TAMSULOSIN [Concomitant]
     Active Substance: TAMSULOSIN
     Dates: start: 20250603, end: 20250603
  7. Trospium 2 mg [Concomitant]
     Dates: start: 20250603, end: 20250603
  8. AMLODIPINE BESYLATE [Concomitant]
     Active Substance: AMLODIPINE BESYLATE

REACTIONS (3)
  - Dizziness [None]
  - Pharyngeal paraesthesia [None]
  - Infusion related reaction [None]

NARRATIVE: CASE EVENT DATE: 20250603
